FAERS Safety Report 8616503-X (Version None)
Quarter: 2012Q3

REPORT INFORMATION
  Report Type: 
  Country: None (occurrence: None)
  Receive Date: 20120823
  Receipt Date: 20120816
  Transmission Date: 20120928
  Serious: Yes (Life-Threatening)
  Sender: FDA-Public Use
  Company Number: US-UCBSA-063900

PATIENT
  Age: 39 Year
  Sex: Female
  Weight: 72.57 kg

DRUGS (13)
  1. DILAUDID [Concomitant]
     Dosage: 1MG/ML Q 4 HRS PRN
  2. DIFICID [Concomitant]
     Dosage: 400 MG/200 ML IVPV
     Route: 042
  3. NYSTATIN [Concomitant]
     Dosage: 100000 UNITS
     Route: 048
  4. LORTAB [Concomitant]
     Indication: PAIN
  5. ORAMORPH SR [Concomitant]
     Route: 048
  6. VANCOMYCIN [Concomitant]
     Indication: CLOSTRIDIUM DIFFICILE COLITIS
  7. CIMZIA [Suspect]
     Indication: CROHN'S DISEASE
     Route: 058
     Dates: start: 20100510
  8. CIMZIA [Suspect]
     Route: 058
     Dates: start: 20100326, end: 20100426
  9. CARISOPRODOL [Concomitant]
     Route: 048
  10. METRONIDAZOLE [Concomitant]
     Indication: CLOSTRIDIUM DIFFICILE COLITIS
  11. ZOFRAN [Concomitant]
     Dosage: 4 MG/2 ML COLN Q 6 HRS PRN
     Route: 042
  12. DILAUDID [Concomitant]
     Dosage: 2 MG Q 12 HRS PRN
     Route: 048
  13. CIPROFLOXACIN HCL [Concomitant]
     Dosage: 400 MG/200 ML IVPB
     Route: 042

REACTIONS (1)
  - CLOSTRIDIUM DIFFICILE COLITIS [None]
